FAERS Safety Report 9085253 (Version 1)
Quarter: 2013Q1

REPORT INFORMATION
  Report Type: Report from Study
  Country: US (occurrence: US)
  Receive Date: 20130131
  Receipt Date: 20130131
  Transmission Date: 20140127
  Serious: No
  Sender: FDA-Public Use
  Company Number: US-ABBOTT-12P-163-0992422-00

PATIENT
  Age: 79 Year
  Sex: Female

DRUGS (9)
  1. HUMIRA [Suspect]
     Indication: PSORIASIS
     Dates: start: 20120802
  2. BLUEBERRY PILLS [Concomitant]
     Indication: SUPPLEMENTATION THERAPY
  3. VITAMIN [Concomitant]
     Indication: SUPPLEMENTATION THERAPY
  4. VITAMIN D-3 [Concomitant]
     Indication: SUPPLEMENTATION THERAPY
  5. CITRACEL [Concomitant]
     Indication: GASTROINTESTINAL DISORDER
  6. MIRALAX [Concomitant]
     Indication: GASTROINTESTINAL DISORDER
     Dosage: 1/2 - 1 TSP
  7. KLONOPIN [Concomitant]
     Indication: RESTLESS LEGS SYNDROME
     Dosage: 1/2 TAB/DAY
  8. PROBIOTICS [Concomitant]
     Indication: GASTROINTESTINAL DISORDER
  9. PROBIOTICS [Concomitant]
     Indication: BLADDER DISORDER

REACTIONS (2)
  - Skin disorder [Recovering/Resolving]
  - Medication error [Unknown]
